FAERS Safety Report 7465124-3 (Version None)
Quarter: 2011Q2

REPORT INFORMATION
  Report Type: 
  Country: None (occurrence: None)
  Receive Date: 20110509
  Receipt Date: 20110502
  Transmission Date: 20111010
  Serious: Yes (Hospitalization)
  Sender: FDA-Public Use
  Company Number: US-GILEAD-2011-0038150

PATIENT
  Sex: Female

DRUGS (10)
  1. REMODULIN [Concomitant]
  2. ADCIRCA [Concomitant]
  3. METOLAZONE [Concomitant]
  4. SINGULAIR [Concomitant]
  5. LASIX [Concomitant]
  6. PROTONIX [Concomitant]
  7. TYVASO [Concomitant]
  8. LETAIRIS [Suspect]
     Indication: PRODUCT USED FOR UNKNOWN INDICATION
     Route: 048
     Dates: start: 20110119
  9. SPIRONOLACTONE [Concomitant]
  10. POTASSIUM CHLORIDE [Concomitant]

REACTIONS (1)
  - HYPOKALAEMIA [None]
